FAERS Safety Report 19452838 (Version 2)
Quarter: 2021Q2

REPORT INFORMATION
  Report Type: Spontaneous
  Country: GB (occurrence: GB)
  Receive Date: 20210623
  Receipt Date: 20210628
  Transmission Date: 20210717
  Serious: Yes (Hospitalization, Other)
  Sender: FDA-Public Use
  Company Number: GB-ACCORD-228555

PATIENT
  Age: 26 Year
  Sex: Male

DRUGS (3)
  1. PREDNISOLONE. [Suspect]
     Active Substance: PREDNISOLONE
     Indication: IMMUNOSUPPRESSANT DRUG THERAPY
     Dosage: 5 MG, QD
     Dates: start: 2001, end: 2016
  2. MYCOPHENOLIC ACID. [Suspect]
     Active Substance: MYCOPHENOLIC ACID
     Indication: IMMUNOSUPPRESSANT DRUG THERAPY
     Dosage: 500 MG, BID
     Dates: start: 2001, end: 2016
  3. TACROLIMUS. [Suspect]
     Active Substance: TACROLIMUS
     Indication: IMMUNOSUPPRESSANT DRUG THERAPY
     Dosage: 2 MG, BID (REDUCED DOSE)
     Dates: start: 2001, end: 2016

REACTIONS (4)
  - Toxoplasmosis [Recovered/Resolved]
  - Epstein-Barr virus infection reactivation [Recovering/Resolving]
  - Eye infection toxoplasmal [Recovered/Resolved]
  - Central nervous system immune reconstitution inflammatory response [Recovered/Resolved]

NARRATIVE: CASE EVENT DATE: 2016
